FAERS Safety Report 6134269-2 (Version None)
Quarter: 2009Q1

REPORT INFORMATION
  Report Type: 
  Country: None (occurrence: None)
  Receive Date: 20090325
  Receipt Date: 20090310
  Transmission Date: 20090719
  Serious: Yes (Hospitalization)
  Sender: FDA-Public Use
  Company Number: 2009S1004855

PATIENT
  Age: 69 Year
  Sex: Female

DRUGS (5)
  1. RAMIPRIL [Suspect]
     Indication: HYPERTENSION
     Dosage: 5 MG;ORAL
     Route: 048
  2. DOXAZOSIN (DOXAZOSIN) [Suspect]
     Indication: HYPERTENSION
     Dosage: 2 MG;ORAL
     Route: 048
  3. METOPROLOL SUCCINATE [Suspect]
     Indication: HYPERTENSION
     Dosage: ORAL
     Route: 048
     Dates: end: 20090101
  4. AMLODIPINE W/VALSARTAN (AMLODIPINE W/VALSARTAN) [Suspect]
     Indication: HYPERTENSION
     Dosage: 1 DF;ORAL
     Route: 048
  5. ASPIRIN [Concomitant]

REACTIONS (7)
  - DRUG INTERACTION [None]
  - ELECTROCARDIOGRAM ST SEGMENT DEPRESSION [None]
  - ELECTROCARDIOGRAM T WAVE INVERSION [None]
  - LOSS OF CONSCIOUSNESS [None]
  - QRS AXIS ABNORMAL [None]
  - SINUS BRADYCARDIA [None]
  - SYNCOPE [None]
